FAERS Safety Report 16257779 (Version 4)
Quarter: 2019Q2

REPORT INFORMATION
  Report Type: Report from Study
  Country: CH (occurrence: CH)
  Receive Date: 20190430
  Receipt Date: 20190528
  Transmission Date: 20190711
  Serious: Yes (Hospitalization)
  Sender: FDA-Public Use
  Company Number: CH-EISAI MEDICAL RESEARCH-EC-2019-055809

PATIENT
  Age: 66 Year
  Sex: Female
  Weight: 46.2 kg

DRUGS (12)
  1. MORPHINE [Concomitant]
     Active Substance: MORPHINE
     Dates: start: 20190222
  2. PSYLLIUM HUSK. [Concomitant]
     Active Substance: PSYLLIUM HUSK
     Dates: start: 200901
  3. MST [Concomitant]
     Dates: start: 20190222
  4. RIOPAN [Concomitant]
     Dates: start: 20190306
  5. CALCIMAGON D3 [Concomitant]
     Active Substance: CALCIUM\CHOLECALCIFEROL
     Dates: start: 200901
  6. LAXOBERON [Concomitant]
     Active Substance: SODIUM PICOSULFATE
     Dates: start: 20190222
  7. PURSANA [Concomitant]
     Active Substance: FIG FRUIT OIL\SORBITOL
     Dates: start: 20190222
  8. LENVATINIB [Suspect]
     Active Substance: LENVATINIB
     Indication: NON-SMALL CELL LUNG CANCER
     Route: 048
     Dates: start: 20190315, end: 20190401
  9. PEMBROLIZUMAB. [Suspect]
     Active Substance: PEMBROLIZUMAB
     Indication: NON-SMALL CELL LUNG CANCER
     Route: 041
     Dates: start: 20190315, end: 20190315
  10. TEMESTA [Concomitant]
     Dates: start: 20190222
  11. NEXIUM [Concomitant]
     Active Substance: ESOMEPRAZOLE MAGNESIUM
     Dates: start: 20190315
  12. ZOVIRAX [Concomitant]
     Active Substance: ACYCLOVIR
     Dates: start: 20190321, end: 20190325

REACTIONS (1)
  - Dermatomyositis [Not Recovered/Not Resolved]

NARRATIVE: CASE EVENT DATE: 20190322
